FAERS Safety Report 9383730 (Version 7)
Quarter: 2015Q2

REPORT INFORMATION
  Report Type: Report from Study
  Country: US (occurrence: US)
  Receive Date: 20130704
  Receipt Date: 20150611
  Transmission Date: 20150821
  Serious: Yes (Hospitalization, Other)
  Sender: FDA-Public Use
  Company Number: US-009507513-1307USA000885

PATIENT
  Age: 60 Year
  Sex: Female
  Weight: 93.88 kg

DRUGS (2)
  1. DEXAMETHASONE. [Suspect]
     Active Substance: DEXAMETHASONE
     Dosage: 5 DF, 5 X PER WEEK (DOSE AR AMOUNT 4 MG (20 MG))
     Dates: start: 20111207, end: 20120501
  2. DEXAMETHASONE. [Suspect]
     Active Substance: DEXAMETHASONE
     Indication: PLASMA CELL MYELOMA
     Dosage: 4 MG (40MG), 10 TABLET Q WEEKLY PER DAY (Q7 DAY)
     Route: 048
     Dates: start: 20120626, end: 20140527

REACTIONS (4)
  - Hypotension [Unknown]
  - Cellulitis [Unknown]
  - Abscess limb [Recovered/Resolved]
  - Dermal cyst [Unknown]

NARRATIVE: CASE EVENT DATE: 20111218
